FAERS Safety Report 21573049 (Version 1)
Quarter: 2022Q4

REPORT INFORMATION
  Report Type: Spontaneous
  Country: LU (occurrence: LU)
  Receive Date: 20221109
  Receipt Date: 20221109
  Transmission Date: 20230113
  Serious: Yes (Hospitalization)
  Sender: FDA-Public Use
  Company Number: None

PATIENT
  Age: 79 Year
  Sex: Female
  Weight: 84 kg

DRUGS (2)
  1. ZIRABEV [Suspect]
     Active Substance: BEVACIZUMAB-BVZR
     Indication: Breast cancer female
     Dosage: 1260 MG, CYCLIC, 1ST CYCLE OF CHEMOTHERAPY
     Route: 042
     Dates: start: 20221010, end: 20221010
  2. PACLITAXEL [Suspect]
     Active Substance: PACLITAXEL
     Indication: Breast cancer female
     Dosage: 147.68 MG, CYCLIC, 1ST CYCLE OF CHEMOTHERAPY
     Route: 042
     Dates: start: 20221010, end: 20221010

REACTIONS (2)
  - Abdominal pain [Recovering/Resolving]
  - Hot flush [Recovered/Resolved]

NARRATIVE: CASE EVENT DATE: 20221010
